FAERS Safety Report 11098063 (Version 1)
Quarter: 2015Q2

REPORT INFORMATION
  Report Type: Spontaneous
  Country: US (occurrence: US)
  Receive Date: 20150507
  Receipt Date: 20150507
  Transmission Date: 20150821
  Serious: No
  Sender: FDA-Public Use
  Company Number: US-PFIZER INC-2015154188

PATIENT
  Sex: Female

DRUGS (8)
  1. CLINORIL [Suspect]
     Active Substance: SULINDAC
     Dosage: UNK
  2. CAPSAICIN. [Suspect]
     Active Substance: CAPSAICIN
     Dosage: UNK
  3. ALOE [Suspect]
     Active Substance: ALOE
     Dosage: UNK
  4. NEOMYCIN SULFATE W/POLYMYXIN B SULFATE [Suspect]
     Active Substance: NEOMYCIN SULFATE\POLYMYXIN B SULFATE
     Dosage: UNK
  5. ALEVE [Suspect]
     Active Substance: NAPROXEN SODIUM
     Dosage: UNK
  6. ADVIL [Suspect]
     Active Substance: IBUPROFEN
     Dosage: UNK
  7. ARICEPT [Suspect]
     Active Substance: DONEPEZIL HYDROCHLORIDE
     Dosage: UNK
  8. MORPHINE SULFATE. [Suspect]
     Active Substance: MORPHINE SULFATE
     Dosage: UNK

REACTIONS (1)
  - Drug hypersensitivity [Unknown]
